FAERS Safety Report 5787532-9 (Version None)
Quarter: 2008Q2

REPORT INFORMATION
  Report Type: 
  Country: None (occurrence: None)
  Receive Date: 20080625
  Receipt Date: 20080617
  Transmission Date: 20081010
  Serious: Yes (Congenital Anomaly)
  Sender: FDA-Public Use
  Company Number: GB-ROCHE-409326

PATIENT
  Sex: Female
  Weight: 60.5 kg

DRUGS (8)
  1. FUZEON [Suspect]
     Route: 058
  2. VALGANCICLOVIR HCL [Suspect]
     Indication: CYTOMEGALOVIRUS INFECTION
     Route: 065
     Dates: start: 20040901
  3. DIDANOSINE [Suspect]
     Route: 048
     Dates: start: 20040901
  4. REYATAZ [Suspect]
     Route: 048
  5. NORVIR [Suspect]
     Route: 048
  6. LAMIVUDINE [Suspect]
     Dosage: DRUG WAS ALSO REPORTED AS EPIVIR.
     Route: 048
  7. COTRIM [Concomitant]
     Route: 065
     Dates: start: 20040101, end: 20070715
  8. COTRIM [Concomitant]
     Route: 065
     Dates: start: 20040101, end: 20070715

REACTIONS (4)
  - ABORTION SPONTANEOUS [None]
  - INTRA-UTERINE DEATH [None]
  - PLACENTAL INFARCTION [None]
  - UMBILICAL CORD ABNORMALITY [None]
